FAERS Safety Report 10520099 (Version 4)
Quarter: 2014Q4

REPORT INFORMATION
  Report Type: Spontaneous
  Country: AR (occurrence: AR)
  Receive Date: 20141015
  Receipt Date: 20141218
  Transmission Date: 20150528
  Serious: Yes (Other)
  Sender: FDA-Public Use
  Company Number: AR-PFIZER INC-2014279944

PATIENT
  Age: 48 Year
  Sex: Male

DRUGS (1)
  1. GENOTROPIN [Suspect]
     Active Substance: SOMATROPIN
     Indication: HYPOPITUITARISM
     Dosage: 0.1 TO 0.5 MG, 1X/DAY (7 TIMES A WEEK)
     Dates: start: 20130410, end: 201408

REACTIONS (3)
  - VIIth nerve paralysis [Recovering/Resolving]
  - Eye disorder [Unknown]
  - Abdominal pain [Recovering/Resolving]

NARRATIVE: CASE EVENT DATE: 20140930
